FAERS Safety Report 19767208 (Version 3)
Quarter: 2021Q4

REPORT INFORMATION
  Report Type: Spontaneous
  Country: PT (occurrence: PT)
  Receive Date: 20210830
  Receipt Date: 20211129
  Transmission Date: 20220303
  Serious: Yes (Other)
  Sender: FDA-Public Use
  Company Number: PT-GT-20210259

PATIENT
  Age: 71 Year
  Sex: Female

DRUGS (4)
  1. INDAPAMIDE [Suspect]
     Active Substance: INDAPAMIDE
     Indication: Essential hypertension
     Dosage: UNK
     Route: 065
  2. PAROXETINE [Concomitant]
     Active Substance: PAROXETINE
     Indication: Depression
     Dosage: UNK
     Route: 065
  3. AMLODIPINE [Concomitant]
     Active Substance: AMLODIPINE BESYLATE
     Indication: Hypertension
     Dosage: UNK
     Route: 065
  4. PERINDOPRIL [Concomitant]
     Active Substance: PERINDOPRIL
     Indication: Essential hypertension
     Dosage: UNK
     Route: 065

REACTIONS (7)
  - Dysgeusia [Recovered/Resolved]
  - Decreased appetite [Recovered/Resolved]
  - Nausea [Recovered/Resolved]
  - Hyponatraemia [Recovered/Resolved]
  - Hypokalaemia [Recovered/Resolved]
  - Asthenia [Recovered/Resolved]
  - Weight decreased [Recovered/Resolved]

NARRATIVE: CASE EVENT DATE: 20210101
